FAERS Safety Report 22291706 (Version 1)
Quarter: 2023Q2

REPORT INFORMATION
  Report Type: Spontaneous
  Country: UA (occurrence: None)
  Receive Date: 20230507
  Receipt Date: 20230507
  Transmission Date: 20230722
  Serious: Yes (Other)
  Sender: FDA-Public Use
  Company Number: UA-ROCHE-3343491

PATIENT
  Age: 53 Year
  Sex: Female

DRUGS (7)
  1. PERJETA [Suspect]
     Active Substance: PERTUZUMAB
     Indication: HER2 positive breast cancer
     Dosage: 17 CYCLES
     Route: 065
     Dates: start: 202010, end: 202109
  2. TRASTUZUMAB [Suspect]
     Active Substance: TRASTUZUMAB
     Indication: HER2 positive breast cancer
     Dosage: 17 CYCLES
     Route: 065
     Dates: start: 202010, end: 202109
  3. LETROZOLE [Suspect]
     Active Substance: LETROZOLE
     Indication: HER2 positive breast cancer
     Route: 065
     Dates: start: 202010, end: 202109
  4. DENOSUMAB [Concomitant]
     Active Substance: DENOSUMAB
     Indication: HER2 positive breast cancer
     Dosage: MAINTANANCE THERAPY
     Route: 065
  5. EXEMESTANE [Concomitant]
     Active Substance: EXEMESTANE
     Indication: HER2 positive breast cancer
     Route: 065
  6. ADO-TRASTUZUMAB EMTANSINE [Concomitant]
     Active Substance: ADO-TRASTUZUMAB EMTANSINE
     Dates: start: 202304
  7. DOCETAXEL [Concomitant]
     Active Substance: DOCETAXEL
     Dosage: 4 CYCLES
     Dates: start: 202001, end: 202008

REACTIONS (2)
  - Disease progression [Unknown]
  - Breast cancer metastatic [Unknown]
